FAERS Safety Report 9104460 (Version 3)
Quarter: 2013Q3

REPORT INFORMATION
  Report Type: Spontaneous
  Country: IL (occurrence: IL)
  Receive Date: 20130220
  Receipt Date: 20130725
  Transmission Date: 20140515
  Serious: Yes (Death, Hospitalization, Other)
  Sender: FDA-Public Use
  Company Number: IL-ROCHE-1192598

PATIENT
  Age: 70 Year
  Sex: 0

DRUGS (3)
  1. AVASTIN [Suspect]
     Indication: COLON CANCER METASTATIC
     Route: 065
  2. XELODA [Suspect]
     Indication: COLON CANCER METASTATIC
     Route: 065
  3. IRINOTECAN [Suspect]
     Indication: COLON CANCER METASTATIC
     Route: 065

REACTIONS (3)
  - Hepatic failure [Fatal]
  - Generalised oedema [Not Recovered/Not Resolved]
  - Ascites [Not Recovered/Not Resolved]
